FAERS Safety Report 5095954-7 (Version None)
Quarter: 2006Q3

REPORT INFORMATION
  Report Type: 
  Country: None (occurrence: None)
  Receive Date: 20060731
  Receipt Date: 20060514
  Transmission Date: 20061208
  Serious: No
  Sender: FDA-Public Use
  Company Number: 2006PV013752

PATIENT
  Age: 63 Year
  Sex: Female
  Weight: 94.8018 kg

DRUGS (5)
  1. BYETTA [Suspect]
     Indication: DIABETES MELLITUS NON-INSULIN-DEPENDENT
     Dosage: SEE IMAGE
     Route: 058
     Dates: start: 20060323, end: 20060509
  2. BYETTA [Suspect]
     Indication: DIABETES MELLITUS NON-INSULIN-DEPENDENT
     Dosage: SEE IMAGE
     Route: 058
     Dates: start: 20060510, end: 20060601
  3. AVALIDE [Concomitant]
  4. STARLIX [Concomitant]
  5. ACTOS [Concomitant]

REACTIONS (13)
  - ASTHENIA [None]
  - BLOOD GLUCOSE DECREASED [None]
  - DISORIENTATION [None]
  - FATIGUE [None]
  - FUNGAL INFECTION [None]
  - HUNGER [None]
  - INFREQUENT BOWEL MOVEMENTS [None]
  - INJECTION SITE BRUISING [None]
  - INJECTION SITE RASH [None]
  - NASOPHARYNGITIS [None]
  - NAUSEA [None]
  - PARAESTHESIA [None]
  - VOMITING [None]
